FAERS Safety Report 12750368 (Version 1)
Quarter: 2016Q3

REPORT INFORMATION
  Report Type: Spontaneous
  Country: None (occurrence: US)
  Receive Date: 20160916
  Receipt Date: 20160916
  Transmission Date: 20161109
  Serious: Yes (Hospitalization)
  Sender: FDA-Public Use
  Company Number: None

PATIENT

DRUGS (1)
  1. INVOKANA [Suspect]
     Active Substance: CANAGLIFLOZIN

REACTIONS (7)
  - Hyperhidrosis [None]
  - Pain [None]
  - Nausea [None]
  - Dyspnoea [None]
  - Therapy cessation [None]
  - Fatigue [None]
  - Vaginal infection [None]

NARRATIVE: CASE EVENT DATE: 20160907
